FAERS Safety Report 25671264 (Version 1)
Quarter: 2025Q3

REPORT INFORMATION
  Report Type: Report from Study
  Country: US (occurrence: US)
  Receive Date: 20250812
  Receipt Date: 20250812
  Transmission Date: 20251020
  Serious: Yes (Other)
  Sender: TAKEDA
  Company Number: US-TAKEDA-2025TUS042803

PATIENT
  Age: 65 Year
  Sex: Female

DRUGS (23)
  1. FRUQUINTINIB [Suspect]
     Active Substance: FRUQUINTINIB
     Indication: Rectosigmoid cancer
  2. FRUQUINTINIB [Suspect]
     Active Substance: FRUQUINTINIB
  3. FRUQUINTINIB [Suspect]
     Active Substance: FRUQUINTINIB
  4. FRUQUINTINIB [Suspect]
     Active Substance: FRUQUINTINIB
  5. ATORVASTATIN [Concomitant]
     Active Substance: ATORVASTATIN
  6. BUPROPION [Concomitant]
     Active Substance: BUPROPION
  7. Emergen C Turmeric and Ginger [Concomitant]
  8. ESCITALOPRAM [Concomitant]
     Active Substance: ESCITALOPRAM OXALATE
  9. IMODIUM A-D [Concomitant]
     Active Substance: LOPERAMIDE HYDROCHLORIDE
  10. INSULIN LISPRO [Concomitant]
     Active Substance: INSULIN LISPRO
  11. LORAZEPAM [Concomitant]
     Active Substance: LORAZEPAM
  12. PEPCID [Concomitant]
     Active Substance: FAMOTIDINE
  13. POLYETHYLENE GLYCOL 3350 [Concomitant]
     Active Substance: POLYETHYLENE GLYCOL 3350
  14. PROMETHAZINE [Concomitant]
     Active Substance: PROMETHAZINE HYDROCHLORIDE
  15. SENNA [Concomitant]
     Active Substance: SENNOSIDES
  16. SIMETHICONE (DIMETHICONE) [Concomitant]
     Active Substance: DIMETHICONE
  17. SYNTHROID [Concomitant]
     Active Substance: LEVOTHYROXINE SODIUM
  18. VITAMIN D3 [Concomitant]
     Active Substance: CHOLECALCIFEROL
  19. ALBUTEROL [Concomitant]
     Active Substance: ALBUTEROL
  20. INSULIN LISPRO [Concomitant]
     Active Substance: INSULIN LISPRO
  21. MIRALAX [Concomitant]
     Active Substance: POLYETHYLENE GLYCOL 3350
  22. ZOFRAN [Concomitant]
     Active Substance: ONDANSETRON HYDROCHLORIDE
  23. CODEINE [Concomitant]
     Active Substance: CODEINE

REACTIONS (8)
  - Rectosigmoid cancer [Unknown]
  - Haematochezia [Recovering/Resolving]
  - Cough [Unknown]
  - Constipation [Recovering/Resolving]
  - Vomiting [Not Recovered/Not Resolved]
  - Fatigue [Unknown]
  - Product dose omission issue [Recovered/Resolved]
  - Memory impairment [Not Recovered/Not Resolved]

NARRATIVE: CASE EVENT DATE: 20250501
